FAERS Safety Report 8191044-5 (Version None)
Quarter: 2012Q1

REPORT INFORMATION
  Report Type: 
  Country: None (occurrence: None)
  Receive Date: 20120307
  Receipt Date: 20120228
  Transmission Date: 20120608
  Serious: Yes (Hospitalization)
  Sender: FDA-Public Use
  Company Number: IT-ASTRAZENECA-2012SE13775

PATIENT
  Age: 29724 Day
  Sex: Male

DRUGS (6)
  1. SELECTIN (PRAVASTATIN SODIUM) [Concomitant]
  2. LASIX [Suspect]
     Indication: HYPERTENSION
     Route: 048
     Dates: start: 20100101, end: 20111125
  3. RANITIDINA (RANITIDINE HYDROCHLORIDE) [Concomitant]
  4. TENORMIN [Suspect]
     Indication: ATRIAL FIBRILLATION
     Route: 048
     Dates: start: 20110101, end: 20111127
  5. TIKLID (TICLOPIDINE) [Concomitant]
  6. DEURSIL (URSODEOXYCHOLIC ACID) [Concomitant]

REACTIONS (4)
  - DROP ATTACKS [None]
  - ORTHOSTATIC HYPOTENSION [None]
  - HUMERUS FRACTURE [None]
  - BRADYCARDIA [None]
